FAERS Safety Report 26076071 (Version 1)
Quarter: 2025Q4

REPORT INFORMATION
  Report Type: Spontaneous
  Country: US (occurrence: None)
  Receive Date: 20251121
  Receipt Date: 20251121
  Transmission Date: 20260118
  Serious: Yes (Hospitalization)
  Sender: FDA-CTU
  Company Number: None

PATIENT
  Age: 51 Year
  Sex: Female

DRUGS (3)
  1. PREVYMIS [Suspect]
     Active Substance: LETERMOVIR
     Indication: Acute myeloid leukaemia
     Dosage: 480 MG DAILY ORAL ?
     Route: 048
     Dates: start: 20251015
  2. Idhifa - not dispensed by Biologics [Concomitant]
  3. VENCLEXTA [Concomitant]
     Active Substance: VENETOCLAX
     Dates: start: 20250627, end: 20251024

REACTIONS (1)
  - Hypertension [None]

NARRATIVE: CASE EVENT DATE: 20251120
